FAERS Safety Report 6285442-4 (Version None)
Quarter: 2009Q3

REPORT INFORMATION
  Report Type: 
  Country: None (occurrence: None)
  Receive Date: 20090727
  Receipt Date: 20090717
  Transmission Date: 20100115
  Serious: Yes (Death)
  Sender: FDA-Public Use
  Company Number: KR-ABBOTT-09P-090-0581241-00

PATIENT
  Age: 79 Year
  Sex: Female
  Weight: 50 kg

DRUGS (6)
  1. HUMIRA [Suspect]
     Indication: RHEUMATOID ARTHRITIS
     Dates: start: 20081111, end: 20090430
  2. METHOTREXATE [Concomitant]
     Indication: INFLAMMATION
     Dosage: 3L/WEEK
     Route: 048
     Dates: start: 20080425
  3. HYDROXYCHLOROQUINE SULFATE [Concomitant]
     Indication: INFLAMMATION
     Dosage: 400 MG DAILY
     Route: 048
     Dates: start: 20080425
  4. CELECOXIB [Concomitant]
     Indication: INFLAMMATION
     Dosage: 200 MG - 2 T DAILY
     Dates: start: 20080425
  5. ULTRACET [Concomitant]
     Indication: PAIN
     Dosage: 1 T DAILY
     Route: 048
     Dates: start: 20080425
  6. PREDNISOLONE [Concomitant]
     Indication: INFLAMMATION
     Dosage: 5 MG TABS - 2 T DAILY
     Route: 048
     Dates: start: 20080425

REACTIONS (1)
  - INTESTINAL INFARCTION [None]
